FAERS Safety Report 4686876-1 (Version None)
Quarter: 2005Q2

REPORT INFORMATION
  Report Type: 
  Country: None (occurrence: None)
  Receive Date: 20050608
  Receipt Date: 20050523
  Transmission Date: 20051028
  Serious: Yes (Other)
  Sender: FDA-Public Use
  Company Number: 2005-0008271

PATIENT
  Age: 67 Year
  Sex: Female
  Weight: 53 kg

DRUGS (3)
  1. EMTRIVA [Suspect]
     Dosage: 200 MG, 1 IN 1 D, ORAL
     Route: 048
     Dates: start: 20050120, end: 20050401
  2. VIREAD [Suspect]
  3. EFIVIRENZ (EFIVERENZ) [Concomitant]

REACTIONS (1)
  - HEPATITIS [None]
